FAERS Safety Report 8473080-4 (Version None)
Quarter: 2012Q2

REPORT INFORMATION
  Report Type: 
  Country: None (occurrence: None)
  Receive Date: 20120627
  Receipt Date: 20120622
  Transmission Date: 20120825
  Serious: Yes (Other)
  Sender: FDA-Public Use
  Company Number: US-ROCHE-1069313

PATIENT
  Sex: Male
  Weight: 86.26 kg

DRUGS (1)
  1. XELODA [Suspect]
     Indication: COLORECTAL CANCER METASTATIC
     Route: 048
     Dates: start: 20120331, end: 20120601

REACTIONS (6)
  - ABDOMINAL TENDERNESS [None]
  - GASTRIC HAEMORRHAGE [None]
  - TRANSIENT ISCHAEMIC ATTACK [None]
  - CLOSTRIDIAL INFECTION [None]
  - NAUSEA [None]
  - DIARRHOEA [None]
